FAERS Safety Report 20351382 (Version 5)
Quarter: 2023Q1

REPORT INFORMATION
  Report Type: Spontaneous
  Country: US (occurrence: US)
  Receive Date: 20220119
  Receipt Date: 20230201
  Transmission Date: 20230417
  Serious: No
  Sender: FDA-Public Use
  Company Number: US-PFIZER INC-2019034453

PATIENT
  Age: 84 Year
  Sex: Female
  Weight: 56.7 kg

DRUGS (2)
  1. PREMARIN [Suspect]
     Active Substance: ESTROGENS, CONJUGATED
     Dosage: 1.25 MG, ALTERNATE DAY
  2. PREMARIN [Suspect]
     Active Substance: ESTROGENS, CONJUGATED
     Dosage: 0.625 MG, UNK

REACTIONS (7)
  - Blood urine present [Unknown]
  - Headache [Unknown]
  - Fatigue [Unknown]
  - Intentional product use issue [Unknown]
  - Product dispensing error [Unknown]
  - Product prescribing error [Unknown]
  - Wrong strength [Unknown]

NARRATIVE: CASE EVENT DATE: 20190201
